FAERS Safety Report 5339976-7 (Version None)
Quarter: 2007Q2

REPORT INFORMATION
  Report Type: 
  Country: None (occurrence: None)
  Receive Date: 20070529
  Receipt Date: 20070514
  Transmission Date: 20071010
  Serious: Yes (Hospitalization, Disabling, Other)
  Sender: FDA-Public Use
  Company Number: 2007RR-07601

PATIENT
  Age: 67 Year
  Sex: Male

DRUGS (4)
  1. IBUPROFEN [Suspect]
     Dosage: 400 MG, TID, ORAL
     Route: 048
     Dates: start: 20070423, end: 20070428
  2. PARACETAMOL (ACETAMINOPHEN/PARACETAMOL) [Concomitant]
  3. SIMVASTATIN [Concomitant]
  4. TINZAPARIN [Concomitant]

REACTIONS (1)
  - GASTROINTESTINAL HAEMORRHAGE [None]
